FAERS Safety Report 16195410 (Version 1)
Quarter: 2019Q2

REPORT INFORMATION
  Report Type: Spontaneous
  Country: GB (occurrence: GB)
  Receive Date: 20190415
  Receipt Date: 20190415
  Transmission Date: 20190711
  Serious: Yes (Hospitalization)
  Sender: FDA-Public Use
  Company Number: GB-TEVA-2019-GB-1036959

PATIENT
  Age: 58 Year
  Sex: Female
  Weight: 80.6 kg

DRUGS (8)
  1. BENZYDAMINE [Concomitant]
     Active Substance: BENZYDAMINE
  2. ONDANSETRON [Concomitant]
     Active Substance: ONDANSETRON
  3. DOCETAXEL. [Suspect]
     Active Substance: DOCETAXEL
     Indication: BREAST CANCER
     Dosage: 180 MG EVERY 3 WEEKS
     Route: 042
     Dates: start: 20190312, end: 20190315
  4. CYCLOPHOSPHAMIDE. [Suspect]
     Active Substance: CYCLOPHOSPHAMIDE
     Indication: BREAST CANCER
     Dosage: 1100 MG EVERY 3 WEEKS
     Route: 042
     Dates: start: 20190312, end: 20190312
  5. DEXAMETHASONE. [Concomitant]
     Active Substance: DEXAMETHASONE
  6. METOCLOPRAMIDE. [Concomitant]
     Active Substance: METOCLOPRAMIDE
  7. EPIRUBICIN [Suspect]
     Active Substance: EPIRUBICIN
     Indication: BREAST CANCER
     Dosage: 160 MG EVERY 3 WEEKS
     Route: 042
     Dates: start: 20190312, end: 20190315
  8. FILGRASTIM [Concomitant]
     Active Substance: FILGRASTIM

REACTIONS (2)
  - Flushing [Unknown]
  - Hyperpyrexia [Recovered/Resolved]

NARRATIVE: CASE EVENT DATE: 20190312
